FAERS Safety Report 9459994 (Version 1)
Quarter: 2013Q3

REPORT INFORMATION
  Report Type: Spontaneous
  Country: US (occurrence: US)
  Receive Date: 20130815
  Receipt Date: 20130815
  Transmission Date: 20140515
  Serious: No
  Sender: FDA-Public Use
  Company Number: US-JNJFOC-20130802259

PATIENT
  Sex: Female
  Weight: 68.04 kg

DRUGS (4)
  1. SANDOZ FENTANYL TRANSDERMAL SYSTEM [Suspect]
     Indication: SCIATICA
     Route: 062
     Dates: start: 2013
  2. SANDOZ FENTANYL TRANSDERMAL SYSTEM [Suspect]
     Indication: NEUROPATHY PERIPHERAL
     Route: 062
     Dates: start: 2013
  3. UNSPECIFIED FENTANYL TRANSDERMAL SYSTEM [Suspect]
     Indication: SCIATICA
     Route: 062
     Dates: end: 2013
  4. UNSPECIFIED FENTANYL TRANSDERMAL SYSTEM [Suspect]
     Indication: NEUROPATHY PERIPHERAL
     Route: 062
     Dates: end: 2013

REACTIONS (3)
  - Dysphonia [Not Recovered/Not Resolved]
  - Poor quality drug administered [Not Recovered/Not Resolved]
  - Product quality issue [Unknown]
